FAERS Safety Report 9123093 (Version 2)
Quarter: 2013Q1

REPORT INFORMATION
  Report Type: Report from Study
  Country: DE (occurrence: DE)
  Receive Date: 20130115
  Receipt Date: 20130128
  Transmission Date: 20140127
  Serious: Yes (Hospitalization)
  Sender: FDA-Public Use
  Company Number: DE-PFIZER INC-2013006363

PATIENT
  Age: 75 Year
  Sex: Female
  Weight: 86 kg

DRUGS (10)
  1. SUNITINIB MALATE [Suspect]
     Indication: METASTATIC RENAL CELL CARCINOMA
     Dosage: 50 MG, 1X/DAY
     Route: 048
     Dates: start: 20121214
  2. RAMIPRIL [Concomitant]
     Dosage: 5 MG, 2X/DAY
  3. TORASEMIDE [Concomitant]
     Dosage: 5 MG, 1X/DAY
  4. MAGNESIUM [Concomitant]
     Dosage: 1 DF, 2X/DAY
  5. BETAHISTINE [Concomitant]
     Dosage: 12 MG, 2X/DAY
  6. DEXAMETHASONE [Concomitant]
     Dosage: 4 MG, 3X/DAY
  7. HYDROCHLOROTHIAZIDE [Concomitant]
     Dosage: 12.5 MG, 2X/DAY
  8. ASS [Concomitant]
     Dosage: 100 MG, 1X/DAY
  9. FORADIL P [Concomitant]
     Dosage: UNK, 2X/DAY
  10. ALLOPURINOL [Concomitant]
     Dosage: 100 MG, 1X/DAY

REACTIONS (4)
  - Leukopenia [Unknown]
  - General physical health deterioration [Unknown]
  - Thrombocytopenia [Unknown]
  - Liver function test abnormal [Unknown]
